FAERS Safety Report 15721021 (Version 1)
Quarter: 2018Q4

REPORT INFORMATION
  Report Type: Spontaneous
  Country: GB (occurrence: GB)
  Receive Date: 20181214
  Receipt Date: 20181214
  Transmission Date: 20190205
  Serious: Yes (Other)
  Sender: FDA-Public Use
  Company Number: GB-TEVA-2018-GB-985813

PATIENT
  Age: 70 Year

DRUGS (6)
  1. OXYCODONE [Interacting]
     Active Substance: OXYCODONE
     Route: 065
  2. RAMIPRIL. [Interacting]
     Active Substance: RAMIPRIL
     Route: 065
  3. PROCHLORPERAZINE. [Suspect]
     Active Substance: PROCHLORPERAZINE
     Route: 065
  4. PRIADEL [Interacting]
     Active Substance: LITHIUM
     Route: 065
  5. TRANYLCYPROMINE [Interacting]
     Active Substance: TRANYLCYPROMINE
     Route: 065
  6. MORPHINE [Interacting]
     Active Substance: MORPHINE
     Route: 065

REACTIONS (8)
  - Tremor [Unknown]
  - Toxicity to various agents [Unknown]
  - Coordination abnormal [Unknown]
  - Drug interaction [Unknown]
  - Renal impairment [Unknown]
  - Therapeutic drug monitoring analysis incorrectly performed [Unknown]
  - Nausea [Unknown]
  - Confusional state [Unknown]
